FAERS Safety Report 5200021-5 (Version None)
Quarter: 2007Q1

REPORT INFORMATION
  Report Type: 
  Country: None (occurrence: None)
  Receive Date: 20070103
  Receipt Date: 20060815
  Transmission Date: 20070707
  Serious: Yes (Hospitalization)
  Sender: FDA-Public Use
  Company Number: 2006BH012392

PATIENT
  Age: 71 Year
  Sex: Male

DRUGS (2)
  1. EXTRANEAL [Suspect]
     Indication: RENAL FAILURE CHRONIC
     Dosage: 2 L; AT BEDTIME; IP
     Route: 033
     Dates: start: 20060726
  2. DIANEAL [Suspect]
     Indication: RENAL FAILURE CHRONIC
     Dosage: UNKNOWN; UNK; IP
     Route: 033

REACTIONS (3)
  - HYPOVOLAEMIA [None]
  - MYOCARDIAL INFARCTION [None]
  - WHITE BLOOD CELL COUNT INCREASED [None]
